FAERS Safety Report 9483939 (Version 2)
Quarter: 2013Q3

REPORT INFORMATION
  Report Type: Report from Study
  Country: CN (occurrence: CN)
  Receive Date: 20130828
  Receipt Date: 20130828
  Transmission Date: 20140515
  Serious: Yes (Hospitalization)
  Sender: FDA-Public Use
  Company Number: PHHO2010CN15627

PATIENT
  Age: 63 Year
  Sex: Female
  Weight: 50 kg

DRUGS (2)
  1. ALISKIREN [Suspect]
     Indication: CARDIOVASCULAR DISORDER
     Route: 048
     Dates: start: 20091120, end: 20100901
  2. IRBESARTAN [Suspect]

REACTIONS (5)
  - Diabetic nephropathy [Not Recovered/Not Resolved]
  - Renal failure acute [Recovering/Resolving]
  - Blood creatinine increased [Recovering/Resolving]
  - Concomitant disease progression [Recovering/Resolving]
  - Renal failure chronic [Recovering/Resolving]
